FAERS Safety Report 6998040-1 (Version None)
Quarter: 2010Q3

REPORT INFORMATION
  Report Type: 
  Country: None (occurrence: None)
  Receive Date: 20100920
  Receipt Date: 20090925
  Transmission Date: 20110219
  Serious: Yes (Other)
  Sender: FDA-Public Use
  Company Number: US-ASTRAZENECA-2009UW18639

PATIENT
  Age: 24 Year
  Sex: Male
  Weight: 73.5 kg

DRUGS (5)
  1. SEROQUEL [Suspect]
     Indication: BIPOLAR DISORDER
     Route: 048
     Dates: start: 20090112, end: 20090126
  2. SEROQUEL [Suspect]
     Route: 048
     Dates: start: 20090126, end: 20090406
  3. SEROQUEL [Suspect]
     Route: 048
     Dates: start: 20090406, end: 20090605
  4. CELEXA [Concomitant]
     Indication: DEPRESSION
     Dosage: 3 MG/25 G DAILY
     Route: 048
     Dates: start: 20090126, end: 20090223
  5. SYMBIAX [Concomitant]
     Indication: BIPOLAR DISORDER
     Route: 048
     Dates: start: 20090223

REACTIONS (2)
  - HALLUCINATION, VISUAL [None]
  - MUSCLE TWITCHING [None]
